FAERS Safety Report 8258931-0 (Version None)
Quarter: 2012Q2

REPORT INFORMATION
  Report Type: 
  Country: None (occurrence: None)
  Receive Date: 20120404
  Receipt Date: 20120401
  Transmission Date: 20120825
  Serious: Yes (Hospitalization)
  Sender: FDA-Public Use
  Company Number: US-ROCHE-1013483

PATIENT

DRUGS (7)
  1. GEMCITABINE HYDROCHLORIDE [Suspect]
     Indication: TRANSITIONAL CELL CARCINOMA
     Dosage: OVER 30 MINUTES ON DAYS 1 AND 8
     Route: 042
     Dates: start: 20031217
  2. ENOXAPARIN SODIUM [Suspect]
     Indication: PRODUCT USED FOR UNKNOWN INDICATION
  3. HERCEPTIN [Suspect]
     Indication: TRANSITIONAL CELL CARCINOMA
     Dosage: OVER 30-90 MINUTES ON DAYS 1,8,15
     Route: 042
     Dates: start: 20031217
  4. FENTANYL CITRATE [Suspect]
     Indication: PRODUCT USED FOR UNKNOWN INDICATION
  5. WARFARIN SODIUM [Suspect]
     Indication: PRODUCT USED FOR UNKNOWN INDICATION
  6. PACLITAXEL [Suspect]
     Indication: TRANSITIONAL CELL CARCINOMA
     Dosage: OVER 3 HOURS ON DAY 1
     Route: 042
     Dates: start: 20031217
  7. CARBOPLATIN [Suspect]
     Indication: TRANSITIONAL CELL CARCINOMA
     Dosage: 5AUC OVER 15 MINUTES ON DAY 1
     Route: 042
     Dates: start: 20031217

REACTIONS (11)
  - CATHETER SITE HAEMORRHAGE [None]
  - DEHYDRATION [None]
  - VOMITING [None]
  - ANAEMIA [None]
  - NAUSEA [None]
  - DEEP VEIN THROMBOSIS [None]
  - EMBOLISM [None]
  - FAECAL VOLUME DECREASED [None]
  - CONSTIPATION [None]
  - WHITE BLOOD CELL COUNT DECREASED [None]
  - PLATELET COUNT DECREASED [None]
